FAERS Safety Report 6260943-3 (Version None)
Quarter: 2009Q3

REPORT INFORMATION
  Report Type: 
  Country: None (occurrence: None)
  Receive Date: 20090709
  Receipt Date: 20090701
  Transmission Date: 20100115
  Serious: Yes (Other)
  Sender: FDA-Public Use
  Company Number: US-BRISTOL-MYERS SQUIBB COMPANY-14687388

PATIENT
  Age: 27 Year
  Sex: Male

DRUGS (6)
  1. DIDANOSINE [Suspect]
     Indication: HIV INFECTION
  2. EMTRICITABINE AND TENOFOVIR DISOPROXIL FUMARATE [Suspect]
     Indication: HIV INFECTION
     Dosage: 1 DOSAGE FORM =  300 MG EMTRICITABINE + 200MG TENOFOVIR DF
  3. NEVIRAPINE [Suspect]
     Indication: HIV INFECTION
     Dosage: DOSE INCREASED FROM 200 TO 400MG A DAY, STOPPED FOR A WEEK AND RESTARTED AGAIN
  4. OMEPRAZOLE [Concomitant]
  5. DOVONEX [Concomitant]
  6. FLUOCINOLONE ACETONIDE [Concomitant]
     Dosage: 0.01% CREAM AS NEEDED

REACTIONS (1)
  - NODULAR REGENERATIVE HYPERPLASIA [None]
